FAERS Safety Report 6087728-5 (Version None)
Quarter: 2009Q1

REPORT INFORMATION
  Report Type: 
  Country: None (occurrence: None)
  Receive Date: 20090218
  Receipt Date: 20090218
  Transmission Date: 20090719
  Serious: Yes (Death)
  Sender: FDA-Public Use
  Company Number: None

PATIENT
  Age: 80 Year
  Sex: Female
  Weight: 45.3597 kg

DRUGS (1)
  1. FOSAMAX [Suspect]
     Indication: RESORPTION BONE INCREASED
     Dosage: WEEKLY, SEVERAL YEARS

REACTIONS (1)
  - OESOPHAGEAL CARCINOMA [None]
